FAERS Safety Report 11124037 (Version 3)
Quarter: 2015Q3

REPORT INFORMATION
  Report Type: Spontaneous
  Country: US (occurrence: US)
  Receive Date: 20150520
  Receipt Date: 20150915
  Transmission Date: 20151125
  Serious: No
  Sender: FDA-Public Use
  Company Number: US-009507513-1504USA021204

PATIENT
  Sex: Female
  Weight: 64.94 kg

DRUGS (1)
  1. NEXPLANON [Suspect]
     Active Substance: ETONOGESTREL
     Indication: CONTRACEPTION
     Dosage: UNK
     Route: 059
     Dates: start: 20140619, end: 20150414

REACTIONS (4)
  - Product quality issue [Unknown]
  - Device kink [Recovered/Resolved]
  - Haemorrhage [Unknown]
  - Device breakage [Recovered/Resolved]
